FAERS Safety Report 7296834-9 (Version None)
Quarter: 2011Q1

REPORT INFORMATION
  Report Type: 
  Country: None (occurrence: None)
  Receive Date: 20110216
  Receipt Date: 20101025
  Transmission Date: 20110831
  Serious: No
  Sender: FDA-Public Use
  Company Number: US-BAYER-201023013BCC

PATIENT
  Sex: Female
  Weight: 110.91 kg

DRUGS (4)
  1. LISINOPRIL [Concomitant]
  2. ADVIL [Concomitant]
     Indication: MYALGIA
  3. NEXIUM [Concomitant]
  4. ALEVE [Suspect]
     Indication: MYALGIA
     Dosage: BOTTLE COUNT 100S
     Route: 048
     Dates: start: 20101025

REACTIONS (1)
  - NO ADVERSE EVENT [None]
